FAERS Safety Report 8484055-3 (Version None)
Quarter: 2012Q3

REPORT INFORMATION
  Report Type: 
  Country: None (occurrence: None)
  Receive Date: 20120703
  Receipt Date: 20120626
  Transmission Date: 20120928
  Serious: Yes (Hospitalization, Disabling)
  Sender: FDA-Public Use
  Company Number: US-BAYER-201027051NA

PATIENT
  Age: 43 Year
  Sex: Female

DRUGS (1)
  1. YAZ [Suspect]
     Indication: ORAL CONTRACEPTION
     Route: 048
     Dates: start: 20081101, end: 20090324

REACTIONS (14)
  - INJURY [None]
  - MEMORY IMPAIRMENT [None]
  - CEREBRAL VENOUS THROMBOSIS [None]
  - HEMIPARESIS [None]
  - SPEECH DISORDER [None]
  - COGNITIVE DISORDER [None]
  - NEUROLOGICAL SYMPTOM [None]
  - CEREBROVASCULAR ACCIDENT [None]
  - COORDINATION ABNORMAL [None]
  - FATIGUE [None]
  - VISUAL IMPAIRMENT [None]
  - PAIN [None]
  - MENTAL DISORDER [None]
  - ANHEDONIA [None]
